FAERS Safety Report 18820104 (Version 1)
Quarter: 2021Q1

REPORT INFORMATION
  Report Type: Spontaneous
  Country: CN (occurrence: CN)
  Receive Date: 20210202
  Receipt Date: 20210202
  Transmission Date: 20210419
  Serious: Yes (Hospitalization, Other)
  Sender: FDA-Public Use
  Company Number: CN-CHEPLA-C20210466

PATIENT
  Age: 7 Month
  Sex: Male

DRUGS (4)
  1. GANCICLOVIR. [Suspect]
     Active Substance: GANCICLOVIR
     Indication: CYTOMEGALOVIRUS INFECTION
  2. VORICONAZOLE. [Suspect]
     Active Substance: VORICONAZOLE
     Indication: LUNG DISORDER
  3. AZITHROMYCIN ANHYDROUS. [Suspect]
     Active Substance: AZITHROMYCIN ANHYDROUS
     Indication: CYTOMEGALOVIRUS INFECTION
  4. MEROPENEM. [Suspect]
     Active Substance: MEROPENEM
     Indication: CYTOMEGALOVIRUS INFECTION

REACTIONS (3)
  - Product use issue [Unknown]
  - Respiratory distress [Unknown]
  - Condition aggravated [Unknown]
